FAERS Safety Report 24039311 (Version 4)
Quarter: 2024Q4

REPORT INFORMATION
  Report Type: Report from Study
  Country: JP (occurrence: JP)
  Receive Date: 20240702
  Receipt Date: 20241216
  Transmission Date: 20250115
  Serious: Yes (Death, Other)
  Sender: AKEBIA THERAPEUTICS
  Company Number: JP-MTPC-MTPC2022-0031084

PATIENT
  Age: 83 Year
  Sex: Female
  Weight: 33 kg

DRUGS (5)
  1. VADADUSTAT [Suspect]
     Active Substance: VADADUSTAT
     Indication: Nephrogenic anaemia
     Dosage: 300 MILLIGRAM, QD
     Route: 048
     Dates: start: 20220620, end: 20230221
  2. VADADUSTAT [Suspect]
     Active Substance: VADADUSTAT
     Dosage: 150 MILLIGRAM, QD
     Route: 048
     Dates: start: 20230222, end: 20231116
  3. DARBEPOETIN ALFA [Concomitant]
     Active Substance: DARBEPOETIN ALFA
     Indication: Nephrogenic anaemia
     Dosage: 40 MICROGRAM, 1/WEEK
     Route: 042
     Dates: end: 20220606
  4. FERRIC CITRATE ANHYDROUS [Concomitant]
     Active Substance: FERRIC CITRATE ANHYDROUS
     Indication: Iron deficiency
     Dosage: 500 MILLIGRAM, QD
     Route: 048
     Dates: start: 20220620
  5. GENTAMICIN SULFATE [Concomitant]
     Active Substance: GENTAMICIN SULFATE
     Indication: Urosepsis
     Dosage: 120 MILLIGRAM, QD
     Route: 051
     Dates: start: 20231113, end: 20231116

REACTIONS (2)
  - Death [Fatal]
  - Pneumonia aspiration [Recovering/Resolving]

NARRATIVE: CASE EVENT DATE: 20221103
